FAERS Safety Report 6003209-9 (Version None)
Quarter: 2008Q4

REPORT INFORMATION
  Report Type: 
  Country: None (occurrence: None)
  Receive Date: 20081215
  Receipt Date: 20081215
  Transmission Date: 20090506
  Serious: Yes (Hospitalization)
  Sender: FDA-Public Use
  Company Number: None

PATIENT
  Sex: Female
  Weight: 42 kg

DRUGS (4)
  1. FLUOROURACIL [Suspect]
     Dosage: 10000 MG
     Dates: end: 20081126
  2. BEVACIZUMAB (RHUMAB VEGF) [Suspect]
     Dosage: 900 MG
     Dates: end: 20081126
  3. CAMPTOSAR [Suspect]
     Dosage: 640 MG
     Dates: end: 20081126
  4. LEUCOVORIN CALCIUM [Suspect]
     Dosage: 2240 MG
     Dates: end: 20081126

REACTIONS (4)
  - INTERNATIONAL NORMALISED RATIO INCREASED [None]
  - LUNG DISORDER [None]
  - POSITRON EMISSION TOMOGRAM ABNORMAL [None]
  - PULMONARY EMBOLISM [None]
